FAERS Safety Report 14930919 (Version 2)
Quarter: 2018Q3

REPORT INFORMATION
  Report Type: Spontaneous
  Country: US (occurrence: US)
  Receive Date: 20180524
  Receipt Date: 20180812
  Transmission Date: 20181010
  Serious: No
  Sender: FDA-Public Use
  Company Number: US-UNITED THERAPEUTICS-UNT-2018-007133

PATIENT
  Sex: Female
  Weight: 52.61 kg

DRUGS (2)
  1. REMODULIN [Suspect]
     Active Substance: TREPROSTINIL
     Indication: PULMONARY ARTERIAL HYPERTENSION
     Dosage: 0.185 ?G/KG, CONTINUING
     Route: 041
     Dates: start: 20180130
  2. REMODULIN [Suspect]
     Active Substance: TREPROSTINIL
     Dosage: UNK
     Route: 041

REACTIONS (1)
  - Dermatitis contact [Unknown]

NARRATIVE: CASE EVENT DATE: 2018
